FAERS Safety Report 8581253 (Version 2)
Quarter: 2012Q4

REPORT INFORMATION
  Report Type: 
  Country: IT (occurrence: IT)
  Receive Date: 20120525
  Receipt Date: 20121119
  Transmission Date: 20130627
  Serious: Yes (Hospitalization)
  Sender: FDA-Public Use
  Company Number: IT-B.I. PHARMACEUTICALS,INC./RIDGEFIELD-2012-EU-02795BY

PATIENT
  Age: 66 Year
  Sex: Female

DRUGS (7)
  1. PRITOR PLUS [Suspect]
     Indication: HYPERTENSION
     Dosage: 92.5 mg
     Route: 048
     Dates: start: 20120101
  2. ZOLOFT [Suspect]
     Indication: DEPRESSION
     Dosage: 25 mg
     Route: 048
     Dates: start: 20120502, end: 20120506
  3. EUTIROX [Concomitant]
  4. CONGESCOR [Concomitant]
  5. XANAX [Concomitant]
  6. LANSOX [Concomitant]
  7. HALICON [Concomitant]

REACTIONS (8)
  - Epilepsy [Unknown]
  - Syncope [Unknown]
  - Micturition disorder [Unknown]
  - Stupor [Unknown]
  - Grand mal convulsion [Unknown]
  - Inappropriate antidiuretic hormone secretion [Unknown]
  - Hyponatraemia [Unknown]
  - Blood osmolarity decreased [Unknown]
